FAERS Safety Report 19840501 (Version 1)
Quarter: 2021Q3

REPORT INFORMATION
  Report Type: Spontaneous
  Country: US (occurrence: US)
  Receive Date: 20210916
  Receipt Date: 20210916
  Transmission Date: 20211014
  Serious: No
  Sender: FDA-Public Use
  Company Number: US-DRREDDYS-SPO/USA/21/0139960

PATIENT
  Age: 24 Year
  Sex: Female

DRUGS (1)
  1. ZENATANE [Suspect]
     Active Substance: ISOTRETINOIN
     Indication: PRODUCT USED FOR UNKNOWN INDICATION
     Dosage: RMA ISSUE DATE: 16/MAR/2021 10:03:51 AM, 13/APR/2021 4:02:47 PM, 18/MAY/2021 6:39:13 PM, 25/JUN/2021

REACTIONS (1)
  - Treatment noncompliance [Unknown]
